FAERS Safety Report 7595679-X (Version None)
Quarter: 2011Q3

REPORT INFORMATION
  Report Type: 
  Country: None (occurrence: None)
  Receive Date: 20110707
  Receipt Date: 20110701
  Transmission Date: 20111222
  Serious: Yes (Hospitalization, Disabling)
  Sender: FDA-Public Use
  Company Number: US-MERCK-1103USA02680

PATIENT
  Age: 53 Year
  Sex: Female
  Weight: 111 kg

DRUGS (2)
  1. FOSAMAX [Suspect]
     Indication: OSTEOPOROSIS
     Route: 048
     Dates: start: 20020201, end: 20071101
  2. FOSAMAX [Suspect]
     Indication: OSTEOPENIA
     Route: 048
     Dates: start: 20020201, end: 20071101

REACTIONS (28)
  - LIPOMA [None]
  - IMPAIRED HEALING [None]
  - BURSITIS [None]
  - FALL [None]
  - DRUG HYPERSENSITIVITY [None]
  - NEURALGIA [None]
  - NEPHROLITHIASIS [None]
  - AORTIC ARTERIOSCLEROSIS [None]
  - LIGAMENT SPRAIN [None]
  - ACROCHORDON [None]
  - DIVERTICULUM INTESTINAL [None]
  - DEPRESSION [None]
  - FRACTURE DELAYED UNION [None]
  - HYPERCHOLESTEROLAEMIA [None]
  - ARTHRALGIA [None]
  - HEPATIC STEATOSIS [None]
  - FEMUR FRACTURE [None]
  - PULMONARY EMBOLISM [None]
  - AVULSION FRACTURE [None]
  - CHRONIC OBSTRUCTIVE PULMONARY DISEASE [None]
  - GASTROINTESTINAL DISORDER [None]
  - MUSCLE SPASMS [None]
  - GASTROOESOPHAGEAL REFLUX DISEASE [None]
  - SPONDYLOLISTHESIS [None]
  - LOW TURNOVER OSTEOPATHY [None]
  - HAEMORRHOIDS [None]
  - CONSTIPATION [None]
  - ANAEMIA [None]
